FAERS Safety Report 25766632 (Version 1)
Quarter: 2025Q3

REPORT INFORMATION
  Report Type: Spontaneous
  Country: US (occurrence: None)
  Receive Date: 20250903
  Receipt Date: 20250903
  Transmission Date: 20251020
  Serious: Yes (Disabling, Other)
  Sender: FDA-CTU
  Company Number: None

PATIENT
  Age: 30 Year
  Sex: Male
  Weight: 99 kg

DRUGS (1)
  1. ESCITALOPRAM [Suspect]
     Active Substance: ESCITALOPRAM OXALATE
     Indication: Depression
     Dates: start: 20240730, end: 20241112

REACTIONS (10)
  - Mania [None]
  - Dissociation [None]
  - Anger [None]
  - Obsessive thoughts [None]
  - Irritability [None]
  - Apathy [None]
  - Back disorder [None]
  - Nausea [None]
  - Weight loss poor [None]
  - Homicidal ideation [None]

NARRATIVE: CASE EVENT DATE: 20240918
